FAERS Safety Report 7423477-6 (Version None)
Quarter: 2011Q2

REPORT INFORMATION
  Report Type: 
  Country: None (occurrence: None)
  Receive Date: 20110419
  Receipt Date: 20110411
  Transmission Date: 20111010
  Serious: Yes (Hospitalization)
  Sender: FDA-Public Use
  Company Number: GB-MPIJNJ-2011-01385

PATIENT

DRUGS (2)
  1. BUPRENORPHINE [Concomitant]
     Indication: PAIN
     Dosage: 20 UG, UNK
  2. VELCADE [Suspect]
     Indication: MULTIPLE MYELOMA
     Dosage: 2.1 MG, UNK
     Route: 042
     Dates: start: 20101122, end: 20110224

REACTIONS (1)
  - DRUG INEFFECTIVE [None]
